FAERS Safety Report 9124468 (Version 1)
Quarter: 2013Q1

REPORT INFORMATION
  Report Type: Spontaneous
  Country: US (occurrence: US)
  Receive Date: 20130116
  Receipt Date: 20130116
  Transmission Date: 20140127
  Serious: No
  Sender: FDA-Public Use
  Company Number: US-B.I. PHARMACEUTICALS,INC./RIDGEFIELD-2013-BI-00760BP

PATIENT
  Sex: Male
  Weight: 90 kg

DRUGS (7)
  1. PRADAXA [Suspect]
     Indication: ATRIAL FIBRILLATION
     Dosage: 300 MG
     Route: 048
     Dates: start: 201212
  2. TRAMADOL [Concomitant]
     Indication: PAIN
  3. LISINOPRIL [Concomitant]
     Route: 048
  4. AMLODIPINE [Concomitant]
     Indication: HYPERTENSION
     Route: 048
  5. LORAZEPAM [Concomitant]
     Indication: ANXIETY
     Route: 048
  6. OMEPRAZOLE [Concomitant]
     Route: 048
  7. METOPROLOL [Concomitant]
     Route: 048

REACTIONS (2)
  - Blood urine present [Recovered/Resolved]
  - Asthenia [Not Recovered/Not Resolved]
